FAERS Safety Report 11036629 (Version 1)
Quarter: 2015Q2

REPORT INFORMATION
  Report Type: Spontaneous
  Country: CN (occurrence: CN)
  Receive Date: 20150416
  Receipt Date: 20150416
  Transmission Date: 20150821
  Serious: Yes (Other)
  Sender: FDA-Public Use
  Company Number: CN-JNJFOC-20150404918

PATIENT
  Age: 43 Year
  Sex: Female
  Weight: 50 kg

DRUGS (1)
  1. MOTRIN [Suspect]
     Active Substance: IBUPROFEN
     Indication: INFECTION
     Route: 048
     Dates: start: 20140913, end: 20140913

REACTIONS (1)
  - Retinal oedema [Recovering/Resolving]

NARRATIVE: CASE EVENT DATE: 20140913
